FAERS Safety Report 6094177-2 (Version None)
Quarter: 2009Q1

REPORT INFORMATION
  Report Type: 
  Country: None (occurrence: None)
  Receive Date: 20090223
  Receipt Date: 20090211
  Transmission Date: 20090719
  Serious: Yes (Hospitalization)
  Sender: FDA-Public Use
  Company Number: GXKR2008ES09141

PATIENT
  Age: 74 Year
  Sex: Female

DRUGS (1)
  1. RIFAMPICIN+ISONIAZID+PYRAZINAMIDE+ETHAMBUTOL (NGX)(ETHAMBUTOL DIHYDROC [Suspect]
     Indication: TUBERCULOSIS
     Dosage: 1 DF/DAY, ORAL
     Route: 048
     Dates: start: 20080421, end: 20080514

REACTIONS (2)
  - HEPATOTOXICITY [None]
  - LUPUS-LIKE SYNDROME [None]
